FAERS Safety Report 12140737 (Version 1)
Quarter: 2016Q1

REPORT INFORMATION
  Report Type: Report from Study
  Country: US (occurrence: US)
  Receive Date: 20160303
  Receipt Date: 20160303
  Transmission Date: 20160526
  Serious: Yes (Hospitalization)
  Sender: FDA-Public Use
  Company Number: US-BAYER-2016-038644

PATIENT
  Age: 74 Year
  Sex: Female
  Weight: 49.89 kg

DRUGS (2)
  1. ADEMPAS [Suspect]
     Active Substance: RIOCIGUAT
     Indication: PULMONARY HYPERTENSION
     Dosage: UNK
     Dates: start: 20160104
  2. ADEMPAS [Suspect]
     Active Substance: RIOCIGUAT
     Indication: PULMONARY HYPERTENSION
     Dosage: 1 MG, TID, LAST SHIPPED ON 01-FEB-2016
     Route: 048

REACTIONS (4)
  - Aphasia [None]
  - Hospitalisation [None]
  - Feeling jittery [None]
  - Feeling abnormal [None]
